FAERS Safety Report 6050172-0 (Version None)
Quarter: 2009Q1

REPORT INFORMATION
  Report Type: 
  Country: None (occurrence: None)
  Receive Date: 20090122
  Receipt Date: 20090122
  Transmission Date: 20090719
  Serious: No
  Sender: FDA-Public Use
  Company Number: None

PATIENT
  Sex: Female
  Weight: 81.6 kg

DRUGS (3)
  1. FLUOROURACIL [Suspect]
     Dosage: 990 MG
     Dates: start: 20081222, end: 20081222
  2. CYCLOPHOSPHAMIDE [Suspect]
     Dosage: 990 MG
     Dates: end: 20081222
  3. ELLENCE [Suspect]
     Dosage: 149 MG
     Dates: end: 20081222

REACTIONS (1)
  - NEUTROPHIL COUNT DECREASED [None]
